FAERS Safety Report 17455403 (Version 1)
Quarter: 2020Q1

REPORT INFORMATION
  Report Type: Spontaneous
  Country: US (occurrence: US)
  Receive Date: 20200212
  Receipt Date: 20200212
  Transmission Date: 20200409
  Serious: Yes (Hospitalization)
  Sender: FDA-Public Use
  Company Number: None

PATIENT
  Age: 14 Year
  Sex: Female

DRUGS (1)
  1. VIGABATRIN 500MG [Suspect]
     Active Substance: VIGABATRIN
     Route: 048

REACTIONS (2)
  - Pneumonia [None]
  - Muscle spasms [None]

NARRATIVE: CASE EVENT DATE: 20191220
